FAERS Safety Report 24402934 (Version 2)
Quarter: 2024Q4

REPORT INFORMATION
  Report Type: Spontaneous
  Country: US (occurrence: US)
  Receive Date: 20241007
  Receipt Date: 20241101
  Transmission Date: 20250115
  Serious: Yes (Death, Hospitalization, Other)
  Sender: GLAXOSMITHKLINE
  Company Number: US-GSK-US2024121963

PATIENT

DRUGS (1)
  1. BREO ELLIPTA [Suspect]
     Active Substance: FLUTICASONE FUROATE\VILANTEROL TRIFENATATE
     Indication: Product used for unknown indication
     Dosage: UNK
     Dates: start: 20240913

REACTIONS (8)
  - Pneumonia [Fatal]
  - Malignant neoplasm progression [Unknown]
  - Fall [Unknown]
  - Cerebral haemorrhage [Unknown]
  - Emphysema [Unknown]
  - Chronic obstructive pulmonary disease [Unknown]
  - Cellulitis [Unknown]
  - Condition aggravated [Unknown]
